FAERS Safety Report 5222460-9 (Version None)
Quarter: 2007Q1

REPORT INFORMATION
  Report Type: 
  Country: None (occurrence: None)
  Receive Date: 20070129
  Receipt Date: 20070122
  Transmission Date: 20070707
  Serious: Yes (Hospitalization, Disabling, Other)
  Sender: FDA-Public Use
  Company Number: PHEH2006US15575

PATIENT
  Age: 47 Year
  Sex: Male
  Weight: 84.353 kg

DRUGS (3)
  1. LAMISIL [Suspect]
     Indication: ONYCHOMYCOSIS
     Dosage: 250 MG, QD
     Route: 048
     Dates: start: 20060719, end: 20061024
  2. FLOMAX [Concomitant]
  3. MIRALAX [Concomitant]

REACTIONS (7)
  - ABDOMINAL PAIN [None]
  - BLADDER DISORDER [None]
  - GASTROINTESTINAL DISORDER [None]
  - HAEMATURIA [None]
  - MALAISE [None]
  - PELVIC FLOOR MUSCLE WEAKNESS [None]
  - TESTICULAR PAIN [None]
